FAERS Safety Report 5873370-5 (Version None)
Quarter: 2008Q3

REPORT INFORMATION
  Report Type: 
  Country: None (occurrence: None)
  Receive Date: 20080903
  Receipt Date: 20080821
  Transmission Date: 20090109
  Serious: Yes (Other)
  Sender: FDA-Public Use
  Company Number: 200808AGG00822

PATIENT
  Age: 36 Year
  Sex: Male

DRUGS (2)
  1. AGGRASTAT [Suspect]
     Indication: CORONARY ANGIOPLASTY
     Dosage: (DOSE NOT REPORTED) INTRAVENOUS (NOT OTHERWISE SPECIFIED))
     Route: 042
     Dates: start: 20080725, end: 20080725
  2. HEPARIN [Suspect]
     Indication: CORONARY ANGIOPLASTY
     Dosage: (INTRAVENOUS (NOT OTHERWISE SPECIFIED))
     Route: 042

REACTIONS (2)
  - INFUSION SITE HAEMATOMA [None]
  - POST PROCEDURAL FISTULA [None]
